FAERS Safety Report 15311932 (Version 1)
Quarter: 2018Q3

REPORT INFORMATION
  Report Type: Spontaneous
  Country: US (occurrence: US)
  Receive Date: 20180814
  Receipt Date: 20180814
  Transmission Date: 20181010
  Serious: Yes (Other)
  Sender: FDA-Public Use
  Company Number: None

PATIENT
  Age: 59 Year
  Sex: Male
  Weight: 69.9 kg

DRUGS (10)
  1. RANITIDINE 150 MG [Concomitant]
     Active Substance: RANITIDINE
     Dates: start: 20160522
  2. GABAPENTIN 300 MG [Concomitant]
     Active Substance: GABAPENTIN
     Dates: start: 20090309
  3. TRIUMEQ [Suspect]
     Active Substance: ABACAVIR SULFATE\DOLUTEGRAVIR SODIUM\LAMIVUDINE
     Indication: HIV INFECTION
     Route: 048
     Dates: start: 20171127, end: 20180814
  4. ELIQUIS [Concomitant]
     Active Substance: APIXABAN
     Dates: start: 20170920
  5. ROSUVSTATIN 20 MG [Concomitant]
     Dates: start: 20171010
  6. FLUOXETINE [Concomitant]
     Active Substance: FLUOXETINE HYDROCHLORIDE
     Dates: start: 20030509
  7. ALBUTEROL MDI 90 MCG/ACT [Concomitant]
     Dates: start: 20100412
  8. MIRTAZAPINE 15 MG [Concomitant]
     Active Substance: MIRTAZAPINE
     Dates: start: 20080428
  9. TRAMADOL 50 MG [Concomitant]
     Active Substance: TRAMADOL
     Dates: start: 20080922
  10. OMEPRAZOLE 20 MG [Concomitant]
     Active Substance: OMEPRAZOLE
     Dates: start: 20170314

REACTIONS (3)
  - Diabetes mellitus [None]
  - Blood glucose increased [None]
  - Glycosylated haemoglobin increased [None]

NARRATIVE: CASE EVENT DATE: 20171127
